FAERS Safety Report 5822309-7 (Version None)
Quarter: 2008Q3

REPORT INFORMATION
  Report Type: 
  Country: None (occurrence: None)
  Receive Date: 20080725
  Receipt Date: 20080401
  Transmission Date: 20090109
  Serious: No
  Sender: FDA-Public Use
  Company Number: US-AMGEN-KDL246559

PATIENT
  Sex: Male
  Weight: 79.5 kg

DRUGS (5)
  1. PROCRIT [Suspect]
     Indication: MYELODYSPLASTIC SYNDROME
     Dates: start: 20070301, end: 20071017
  2. FISH OIL [Concomitant]
  3. VITAMIN B-12 [Concomitant]
  4. COENZYME Q10 [Concomitant]
  5. AZACITIDINE [Concomitant]

REACTIONS (7)
  - HEARING IMPAIRED [None]
  - MOBILITY DECREASED [None]
  - OEDEMA PERIPHERAL [None]
  - PLATELET COUNT INCREASED [None]
  - PRODUCTIVE COUGH [None]
  - URINARY RETENTION [None]
  - WHITE BLOOD CELL COUNT INCREASED [None]
